FAERS Safety Report 4508713-8 (Version None)
Quarter: 2004Q4

REPORT INFORMATION
  Report Type: 
  Country: None (occurrence: None)
  Receive Date: 20041123
  Receipt Date: 20040614
  Transmission Date: 20050328
  Serious: Yes (Other)
  Sender: FDA-Public Use
  Company Number: US-GLAXOSMITHKLINE-A0514525A

PATIENT
  Age: 41 Year
  Sex: Female

DRUGS (4)
  1. WELLBUTRIN SR [Suspect]
     Dosage: 150MG TWICE PER DAY
  2. WELLBUTRIN [Suspect]
     Dosage: 300MG PER DAY
     Route: 048
  3. GEODON [Concomitant]
  4. DEPAKOTE [Concomitant]

REACTIONS (2)
  - INSOMNIA [None]
  - MANIA [None]
